FAERS Safety Report 21126036 (Version 4)
Quarter: 2023Q1

REPORT INFORMATION
  Report Type: Report from Study
  Country: CN (occurrence: CN)
  Receive Date: 20220725
  Receipt Date: 20230227
  Transmission Date: 20230417
  Serious: Yes (Hospitalization)
  Sender: FDA-Public Use
  Company Number: CN-PFIZER INC-PV202200023594

PATIENT
  Age: 35 Year
  Sex: Male
  Weight: 75 kg

DRUGS (18)
  1. SILDENAFIL CITRATE [Suspect]
     Active Substance: SILDENAFIL CITRATE
     Indication: Pulmonary arterial hypertension
     Dosage: 20 MILLIGRAM, TID (20 MG, 3X/DAY)
     Route: 048
     Dates: start: 20220121
  2. FUROSEMIDE [Concomitant]
     Active Substance: FUROSEMIDE
     Indication: Right ventricular failure
     Dosage: 20 MILLIGRAM, BID
     Route: 048
     Dates: start: 20200609
  3. SPIRONOLACTONE [Concomitant]
     Active Substance: SPIRONOLACTONE
     Indication: Right ventricular failure
     Dosage: 20 MILLIGRAM, BID
     Route: 048
     Dates: start: 20200609
  4. POTASSIUM CHLORIDE [Concomitant]
     Active Substance: POTASSIUM CHLORIDE
     Indication: Mineral supplementation
     Dosage: 0.5 GRAM, TID (THREE TIMES PER DAY)
     Route: 048
     Dates: start: 2020
  5. BOSENTAN [Concomitant]
     Active Substance: BOSENTAN
     Indication: Pulmonary arterial hypertension
     Dosage: UNK
     Route: 048
     Dates: start: 2020
  6. BOSENTAN [Concomitant]
     Active Substance: BOSENTAN
     Dosage: 125 MILLIGRAM, BID
     Route: 048
     Dates: start: 20211127
  7. AMBRISENTAN [Concomitant]
     Active Substance: AMBRISENTAN
     Indication: Pulmonary arterial hypertension
     Dosage: UNK
     Route: 048
     Dates: start: 2020
  8. DIGOXIN [Concomitant]
     Active Substance: DIGOXIN
     Indication: Right ventricular failure
     Dosage: 0.125 MILLIGRAM, QD (ONCE PER DAY)
     Route: 048
     Dates: start: 20200609
  9. ADENOSINE CYCLIC PHOSPHATE MEGLUMINE [Concomitant]
     Active Substance: ADENOSINE CYCLIC PHOSPHATE MEGLUMINE
     Indication: Right ventricular failure
     Dosage: 120 MILLIGRAM, QD
     Route: 065
     Dates: start: 20220611
  10. POTASSIUM CHLORIDE [Concomitant]
     Active Substance: POTASSIUM CHLORIDE
     Indication: Right ventricular failure
     Dosage: 0.75 GRAM, QD
     Route: 065
     Dates: start: 20220611
  11. ASPIRIN [Concomitant]
     Active Substance: ASPIRIN
     Indication: Right ventricular failure
     Dosage: 0.1 GRAM, HS(ONCE PER NIGHT)
     Route: 048
     Dates: start: 20220611
  12. ROSUVASTATIN CALCIUM [Concomitant]
     Active Substance: ROSUVASTATIN CALCIUM
     Indication: Right ventricular failure
     Dosage: 10 MILLIGRAM, HS(ONCE PER NIGHT)
     Route: 048
     Dates: start: 20220611
  13. METOPROLOL SUCCINATE [Concomitant]
     Active Substance: METOPROLOL SUCCINATE
     Indication: Right ventricular failure
     Dosage: 23.75 MILLIGRAM, QD (ONCE PER DAY)
     Route: 048
     Dates: start: 20220611, end: 20220612
  14. METOPROLOL SUCCINATE [Concomitant]
     Active Substance: METOPROLOL SUCCINATE
     Dosage: 47.5 MILLIGRAM, QD
     Route: 048
     Dates: start: 20220612
  15. TORSEMIDE [Concomitant]
     Active Substance: TORSEMIDE
     Indication: Right ventricular failure
     Dosage: 20 MILLIGRAM, QD
     Route: 065
     Dates: start: 20220611, end: 20220613
  16. FUROSEMIDE [Concomitant]
     Active Substance: FUROSEMIDE
     Indication: Right ventricular failure
     Dosage: 20 MILLIGRAM, QD
     Route: 065
     Dates: start: 20220611, end: 20220611
  17. FUROSEMIDE [Concomitant]
     Active Substance: FUROSEMIDE
     Dosage: 20 MILLIGRAM, QD
     Route: 065
     Dates: start: 20220614, end: 20220614
  18. FUROSEMIDE [Concomitant]
     Active Substance: FUROSEMIDE
     Dosage: 20 MILLIGRAM, QD
     Route: 065
     Dates: start: 20220616, end: 20220616

REACTIONS (1)
  - Right ventricular failure [Recovered/Resolved]

NARRATIVE: CASE EVENT DATE: 20220611
